FAERS Safety Report 14260873 (Version 2)
Quarter: 2017Q4

REPORT INFORMATION
  Report Type: Report from Study
  Country: US (occurrence: US)
  Receive Date: 20171207
  Receipt Date: 20171218
  Transmission Date: 20180321
  Serious: Yes (Other)
  Sender: FDA-Public Use
  Company Number: US-GILEAD-2017-0308916

PATIENT
  Age: 85 Year
  Sex: Male

DRUGS (8)
  1. ISOSORBIDE MONONITRATE. [Concomitant]
     Active Substance: ISOSORBIDE MONONITRATE
     Route: 065
  2. MELOXICAM. [Concomitant]
     Active Substance: MELOXICAM
     Route: 065
  3. FUROSEMIDE. [Concomitant]
     Active Substance: FUROSEMIDE
     Route: 065
  4. ROSUVASTATIN CALCIUM. [Concomitant]
     Active Substance: ROSUVASTATIN CALCIUM
     Route: 065
  5. PAROXETINE. [Concomitant]
     Active Substance: PAROXETINE
     Route: 065
  6. VITAMIN D                          /00107901/ [Concomitant]
     Active Substance: ERGOCALCIFEROL
     Route: 065
  7. AMLODIPINE [Concomitant]
     Active Substance: AMLODIPINE BESYLATE
     Route: 065
  8. IDELALISIB [Suspect]
     Active Substance: IDELALISIB
     Indication: PRODUCT USED FOR UNKNOWN INDICATION
     Dosage: 150 MG, UNK
     Route: 065
     Dates: start: 20171114

REACTIONS (3)
  - Blood potassium increased [Unknown]
  - Loss of consciousness [Unknown]
  - Unevaluable event [Unknown]
